FAERS Safety Report 21337489 (Version 1)
Quarter: 2022Q3

REPORT INFORMATION
  Report Type: Spontaneous
  Country: DE (occurrence: DE)
  Receive Date: 20220915
  Receipt Date: 20220915
  Transmission Date: 20221026
  Serious: Yes (Hospitalization)
  Sender: FDA-Public Use
  Company Number: DE-Accord-237797

PATIENT
  Age: 63 Year
  Sex: Male

DRUGS (3)
  1. OXALIPLATIN [Suspect]
     Active Substance: OXALIPLATIN
     Indication: Colon cancer metastatic
     Dosage: STRENGTH: 5 MG/ML
     Dates: start: 20210615, end: 20210615
  2. OXALIPLATIN [Suspect]
     Active Substance: OXALIPLATIN
     Indication: Product used for unknown indication
     Dosage: STRENGTH: 5 MG/ML
     Dates: start: 202107
  3. OXALIPLATIN [Suspect]
     Active Substance: OXALIPLATIN
     Indication: Colon cancer metastatic
     Dosage: STRENGTH: 5 MG/ML
     Dates: start: 20210629, end: 20210629

REACTIONS (3)
  - Hypersensitivity [Unknown]
  - Hypertension [Recovered/Resolved]
  - Chills [Recovered/Resolved]
